FAERS Safety Report 5197463-3 (Version None)
Quarter: 2006Q4

REPORT INFORMATION
  Report Type: 
  Country: None (occurrence: None)
  Receive Date: 20061228
  Receipt Date: 20061218
  Transmission Date: 20070319
  Serious: Yes (Hospitalization)
  Sender: FDA-Public Use
  Company Number: 1-14492742 /MED-06236

PATIENT
  Age: 78 Year
  Sex: Female

DRUGS (8)
  1. BISOPROLOL FUMARATE TABLET 5 MG [Suspect]
     Indication: ESSENTIAL HYPERTENSION
     Dosage: ORAL
     Route: 048
     Dates: end: 20061023
  2. PERINDOPRIL ERBUMINE [Suspect]
     Indication: ESSENTIAL HYPERTENSION
     Dosage: ORAL
     Route: 048
     Dates: start: 20061001, end: 20061023
  3. LASILIX RETARD (FUROSEMIDE) [Suspect]
     Indication: ESSENTIAL HYPERTENSION
     Dates: end: 20061023
  4. ALLOPURINOL TAB [Concomitant]
  5. GLIMEPIRIDE [Concomitant]
  6. PLAVIX [Concomitant]
  7. KAYEXALATE [Concomitant]
  8. GLUCOPHAGE [Concomitant]

REACTIONS (2)
  - ECZEMA [None]
  - PHOTOSENSITIVITY REACTION [None]
